FAERS Safety Report 9950636 (Version 2)
Quarter: 2014Q1

REPORT INFORMATION
  Report Type: Report from Study
  Country: US (occurrence: US)
  Receive Date: 20140304
  Receipt Date: 20140304
  Transmission Date: 20141002
  Serious: No
  Sender: FDA-Public Use
  Company Number: US-ABBVIE-13P-163-1049044-00

PATIENT
  Age: 43 Year
  Sex: Female

DRUGS (4)
  1. HUMIRA [Suspect]
     Indication: CROHN^S DISEASE
     Dosage: LOADING DOSE
     Dates: start: 20130203
  2. HUMIRA [Suspect]
  3. PREDNISONE [Suspect]
     Indication: SNEEZING
     Dates: end: 20130307
  4. PREDNISONE [Suspect]
     Indication: THROAT IRRITATION

REACTIONS (3)
  - Sneezing [Not Recovered/Not Resolved]
  - Throat irritation [Not Recovered/Not Resolved]
  - Thinking abnormal [Unknown]
